FAERS Safety Report 11491048 (Version 2)
Quarter: 2016Q3

REPORT INFORMATION
  Report Type: Spontaneous
  Country: US (occurrence: US)
  Receive Date: 20150910
  Receipt Date: 20160907
  Transmission Date: 20161109
  Serious: Yes (Other)
  Sender: FDA-Public Use
  Company Number: US-JNJFOC-20100707088

PATIENT
  Age: 35 Year
  Sex: Female
  Weight: 58.51 kg

DRUGS (1)
  1. LEVAQUIN [Suspect]
     Active Substance: LEVOFLOXACIN
     Indication: BACTERIAL INFECTION
     Route: 048
     Dates: start: 200704

REACTIONS (2)
  - Neuropathy peripheral [Unknown]
  - Tendon injury [Unknown]

NARRATIVE: CASE EVENT DATE: 200709
